FAERS Safety Report 25461288 (Version 1)
Quarter: 2025Q2

REPORT INFORMATION
  Report Type: Spontaneous
  Country: US (occurrence: US)
  Receive Date: 20250620
  Receipt Date: 20250620
  Transmission Date: 20250717
  Serious: Yes (Other)
  Sender: RANBAXY
  Company Number: US-SUN PHARMACEUTICAL INDUSTRIES LTD-2023R1-387006

PATIENT

DRUGS (1)
  1. TESTOSTERONE [Suspect]
     Active Substance: TESTOSTERONE
     Indication: Product used for unknown indication
     Route: 065

REACTIONS (8)
  - Suicidal ideation [Unknown]
  - Anxiety [Unknown]
  - Blood pressure increased [Unknown]
  - Confusional state [Unknown]
  - Dizziness [Unknown]
  - Insomnia [Unknown]
  - Muscular weakness [Unknown]
  - Pain in extremity [Unknown]
